FAERS Safety Report 6549058-4 (Version None)
Quarter: 2010Q1

REPORT INFORMATION
  Report Type: 
  Country: None (occurrence: None)
  Receive Date: 20100119
  Receipt Date: 20100105
  Transmission Date: 20100710
  Serious: Yes (Life-Threatening, Hospitalization)
  Sender: FDA-Public Use
  Company Number: 2010000055

PATIENT
  Age: 73 Year
  Sex: Female

DRUGS (9)
  1. ERLOTINIB HYDROCHLORIDE [Suspect]
     Indication: NON-SMALL CELL LUNG CANCER
     Dosage: (150 MG, QD), ORAL
     Route: 048
     Dates: start: 20091024, end: 20091214
  2. TAXOTERE [Suspect]
     Indication: NON-SMALL CELL LUNG CANCER
     Dosage: (145 MG, Q3W), INTRAVENOUS
     Route: 042
     Dates: start: 20091021
  3. SINTROM [Concomitant]
  4. EZETIMIBE/SIMVASTATIN [Concomitant]
  5. ANGORON (AMIODARONE HYDROCHLORIDE) [Concomitant]
  6. LEVOTHYROXINE SODIUM [Concomitant]
  7. ENALAPRIL MALEATE [Concomitant]
  8. MEDROL [Concomitant]
  9. FENTANYL-100 [Concomitant]

REACTIONS (2)
  - RENAL FAILURE ACUTE [None]
  - SEPTIC SHOCK [None]
